FAERS Safety Report 17252087 (Version 1)
Quarter: 2019Q4

REPORT INFORMATION
  Report Type: Spontaneous
  Country: US (occurrence: US)
  Receive Date: 20191214
  Receipt Date: 20191214
  Transmission Date: 20200122
  Serious: Yes (Life-Threatening, Hospitalization, Other)
  Sender: FDA-Public Use
  Company Number: None

PATIENT
  Sex: Female

DRUGS (1)
  1. TERBUTALINE [Suspect]
     Active Substance: TERBUTALINE
     Indication: UTERINE CONTRACTIONS DURING PREGNANCY
     Dosage: ?          QUANTITY:1 DF DOSAGE FORM;OTHER FREQUENCY:TO STOP CONTRACTI?;?
     Route: 030
     Dates: start: 20191210, end: 20191210

REACTIONS (4)
  - Tachycardia [None]
  - Maternal drugs affecting foetus [None]
  - Respiratory depression [None]
  - Infantile apnoea [None]

NARRATIVE: CASE EVENT DATE: 20191210
